FAERS Safety Report 20156203 (Version 1)
Quarter: 2021Q4

REPORT INFORMATION
  Report Type: Spontaneous
  Country: SY (occurrence: SY)
  Receive Date: 20211207
  Receipt Date: 20211207
  Transmission Date: 20220303
  Serious: No
  Sender: FDA-Public Use
  Company Number: SY-LUPIN PHARMACEUTICALS INC.-2021-23627

PATIENT
  Sex: Male
  Weight: 7.3 kg

DRUGS (8)
  1. VANCOMYCIN [Suspect]
     Active Substance: VANCOMYCIN
     Indication: Superinfection
     Dosage: UNK AS NEEDED
     Route: 065
     Dates: start: 2021
  2. VANCOMYCIN [Suspect]
     Active Substance: VANCOMYCIN
     Indication: COVID-19
  3. CEFTRIAXONE [Suspect]
     Active Substance: CEFTRIAXONE
     Indication: Superinfection
     Dosage: UNK AS NEEDED
     Route: 065
     Dates: start: 2021
  4. CEFTRIAXONE [Suspect]
     Active Substance: CEFTRIAXONE
     Indication: COVID-19
  5. PREDNISOLONE [Suspect]
     Active Substance: PREDNISOLONE
     Indication: Superinfection
     Dosage: UNK AS NEEDED
     Route: 065
     Dates: start: 2021
  6. PREDNISOLONE [Suspect]
     Active Substance: PREDNISOLONE
     Indication: COVID-19
  7. ACTINOMYCIN D [Concomitant]
     Active Substance: DACTINOMYCIN
     Indication: Adjuvant therapy
     Dosage: UNK THE PATIENT RECEIVED ADJUVANT CHEMOTHERAPY FOR 28 WEEKS TO ELIMINATE ANY POSSIBLE REMAINING CANC
     Route: 065
     Dates: start: 2021, end: 2021
  8. VINCRISTINE [Concomitant]
     Active Substance: VINCRISTINE
     Indication: Adjuvant therapy
     Dosage: UNK THE PATIENT RECEIVED ADJUVANT CHEMOTHERAPY FOR 28 WEEKS TO ELIMINATE ANY POSSIBLE REMAINING CANC
     Route: 065
     Dates: start: 2021, end: 2021

REACTIONS (1)
  - Off label use [Unknown]

NARRATIVE: CASE EVENT DATE: 20210101
